FAERS Safety Report 20088928 (Version 2)
Quarter: 2022Q1

REPORT INFORMATION
  Report Type: Spontaneous
  Country: US (occurrence: US)
  Receive Date: 20211119
  Receipt Date: 20220210
  Transmission Date: 20220423
  Serious: No
  Sender: FDA-Public Use
  Company Number: US-DECIPHERA PHARMACEUTICALS LLC-2021US000843

PATIENT
  Sex: Female

DRUGS (3)
  1. QINLOCK [Suspect]
     Active Substance: RIPRETINIB
     Indication: Gastrointestinal stromal tumour
     Dosage: 150 MILLIGRAM, QD,  THREE WEEKS ON ONE WEEK OFF
     Route: 048
     Dates: start: 20210828, end: 2021
  2. QINLOCK [Suspect]
     Active Substance: RIPRETINIB
     Dosage: 150 MILLIGRAM, TID,  THREE WEEKS ON ONE WEEK OFF
     Route: 048
     Dates: start: 2021
  3. QINLOCK [Suspect]
     Active Substance: RIPRETINIB
     Dosage: 150 MILLIGRAM, QD, THREE WEEKS ON ONE WEEK OFF
     Route: 048

REACTIONS (13)
  - Bone pain [Unknown]
  - Gait disturbance [Unknown]
  - Pain [Unknown]
  - Feeling abnormal [Unknown]
  - Insomnia [Unknown]
  - Abdominal pain upper [Unknown]
  - Back pain [Unknown]
  - Arthralgia [Unknown]
  - Stomatitis [Unknown]
  - Nausea [Unknown]
  - Alopecia [Unknown]
  - Extra dose administered [Unknown]
  - Inappropriate schedule of product administration [Unknown]

NARRATIVE: CASE EVENT DATE: 20210101
